FAERS Safety Report 8609537-2 (Version None)
Quarter: 2012Q3

REPORT INFORMATION
  Report Type: 
  Country: None (occurrence: None)
  Receive Date: 20120810
  Receipt Date: 20120810
  Transmission Date: 20120928
  Serious: Yes (Other)
  Sender: FDA-Public Use
  Company Number: None

PATIENT
  Age: 55 Year
  Sex: Female
  Weight: 61.2356 kg

DRUGS (2)
  1. SAVELLA [Suspect]
     Indication: MYALGIA
     Dosage: TITRATION PACK
     Dates: start: 20120807, end: 20120808
  2. SAVELLA [Suspect]
     Indication: PAIN
     Dosage: TITRATION PACK
     Dates: start: 20120807, end: 20120808

REACTIONS (7)
  - MYALGIA [None]
  - FEELING ABNORMAL [None]
  - MOVEMENT DISORDER [None]
  - HYPERHIDROSIS [None]
  - MIGRAINE [None]
  - FATIGUE [None]
  - LOSS OF CONSCIOUSNESS [None]
